FAERS Safety Report 15261909 (Version 1)
Quarter: 2018Q3

REPORT INFORMATION
  Report Type: Report from Study
  Country: US (occurrence: US)
  Receive Date: 20180809
  Receipt Date: 20180809
  Transmission Date: 20181010
  Serious: No
  Sender: FDA-Public Use
  Company Number: US-AEGERION PHARMACEUTICAL, INC-AEGR003772

PATIENT
  Age: 63 Year
  Sex: Female
  Weight: 79.82 kg

DRUGS (1)
  1. JUXTAPID [Suspect]
     Active Substance: LOMITAPIDE MESYLATE
     Indication: TYPE IIA HYPERLIPIDAEMIA
     Dosage: 5 MG, QD, EACH NIGHT
     Route: 048
     Dates: start: 20180315

REACTIONS (4)
  - Gastrointestinal disorder [Unknown]
  - Blood cholesterol increased [Unknown]
  - Rotator cuff syndrome [Unknown]
  - Weight decreased [Unknown]

NARRATIVE: CASE EVENT DATE: 201803
